FAERS Safety Report 8462947-9 (Version None)
Quarter: 2012Q2

REPORT INFORMATION
  Report Type: 
  Country: None (occurrence: None)
  Receive Date: 20120323
  Receipt Date: 20111103
  Transmission Date: 20120825
  Serious: Yes (Other)
  Sender: FDA-Public Use
  Company Number: 163-21880-11110974

PATIENT
  Age: 72 Year
  Sex: Male
  Weight: 73.7 kg

DRUGS (2)
  1. AMBIEN [Suspect]
     Indication: PRODUCT USED FOR UNKNOWN INDICATION
     Dosage: 5 MG
     Dates: start: 20110524
  2. REVLIMID [Suspect]
     Indication: MULTIPLE MYELOMA
     Dosage: 25 MG, DAILY D1-14, PO
     Route: 048
     Dates: start: 20110503

REACTIONS (1)
  - HALLUCINATION [None]
